FAERS Safety Report 10394661 (Version 3)
Quarter: 2018Q1

REPORT INFORMATION
  Report Type: Report from Study
  Country: US (occurrence: US)
  Receive Date: 20140820
  Receipt Date: 20180110
  Transmission Date: 20180508
  Serious: Yes (Other)
  Sender: FDA-Public Use
  Company Number: US-ROCHE-1311088

PATIENT
  Age: 13 Year
  Sex: Female
  Weight: 61.3 kg

DRUGS (7)
  1. NUTROPIN AQ [Suspect]
     Active Substance: SOMATROPIN
     Dosage: 0.3 MG/KG/WEEK
     Route: 058
  2. LEVOTHYROXINE. [Concomitant]
     Active Substance: LEVOTHYROXINE
     Dosage: DOSE INCREASED
     Route: 065
  3. NUTROPIN AQ [Suspect]
     Active Substance: SOMATROPIN
     Dosage: NUSPIN 20 MG
     Route: 058
  4. HYDROCORTISONE. [Concomitant]
     Active Substance: HYDROCORTISONE
     Indication: STRESS
     Dosage: AS NEEDED
     Route: 065
  5. DDAVP [Concomitant]
     Active Substance: DESMOPRESSIN ACETATE
     Dosage: DOSE INCREASED
     Route: 065
  6. NUTROPIN AQ [Suspect]
     Active Substance: SOMATROPIN
     Indication: HYPOPITUITARISM
     Dosage: 0.25 MG/KG/WEEK
     Route: 058
  7. LEVOTHYROXINE. [Concomitant]
     Active Substance: LEVOTHYROXINE
     Dosage: DOSE INCREASED
     Route: 065

REACTIONS (12)
  - Hypernatraemia [Unknown]
  - Blood sodium decreased [Unknown]
  - Pollakiuria [Unknown]
  - Thyroxine decreased [Unknown]
  - Abdominal pain [Unknown]
  - Dry skin [Not Recovered/Not Resolved]
  - Muscle spasms [Unknown]
  - Muscle spasms [Unknown]
  - Insulin-like growth factor decreased [Unknown]
  - Blood glucose decreased [Unknown]
  - Thirst [Unknown]
  - Vaginal discharge [Unknown]

NARRATIVE: CASE EVENT DATE: 201301
